FAERS Safety Report 25340080 (Version 2)
Quarter: 2025Q3

REPORT INFORMATION
  Report Type: Report from Study
  Country: US (occurrence: US)
  Receive Date: 20250521
  Receipt Date: 20250717
  Transmission Date: 20251020
  Serious: Yes (Death, Other)
  Sender: ACADIA PHARMACEUTICALS
  Company Number: US-ACADIA PHARMACEUTICALS INC.-ACA-2025-PIM-005930

PATIENT
  Age: 56 Year
  Sex: Male

DRUGS (4)
  1. NUPLAZID [Suspect]
     Active Substance: PIMAVANSERIN TARTRATE
     Indication: Parkinson^s disease
     Dosage: 34 MILLIGRAM, QD
     Route: 048
     Dates: start: 20211020
  2. MELATONIN [Concomitant]
     Active Substance: MELATONIN
  3. NOURIANZ [Concomitant]
     Active Substance: ISTRADEFYLLINE
  4. VITAMIN D NOS [Concomitant]
     Active Substance: CHOLECALCIFEROL\ERGOCALCIFEROL

REACTIONS (3)
  - Death [Fatal]
  - Hallucination [Unknown]
  - Constipation [Unknown]

NARRATIVE: CASE EVENT DATE: 20250705
